FAERS Safety Report 16937902 (Version 9)
Quarter: 2021Q4

REPORT INFORMATION
  Report Type: Report from Study
  Country: DE (occurrence: DE)
  Receive Date: 20191018
  Receipt Date: 20211014
  Transmission Date: 20220303
  Serious: Yes (Hospitalization, Other)
  Sender: FDA-Public Use
  Company Number: DE-002147023-PHHY2019DE226762

PATIENT
  Sex: Female
  Weight: 57 kg

DRUGS (9)
  1. HYDROMORPHONE HYDROCHLORIDE [Suspect]
     Active Substance: HYDROMORPHONE HYDROCHLORIDE
     Indication: Pain
     Dosage: 4 MG, 2X1 DF
     Route: 048
     Dates: start: 20190923
  2. LETROZOLE [Suspect]
     Active Substance: LETROZOLE
     Indication: Breast cancer metastatic
     Dosage: 2.5 MG, DAILY [2.5 MG, QD]
     Route: 048
     Dates: start: 20190902
  3. KISQALI [Suspect]
     Active Substance: RIBOCICLIB
     Indication: Breast cancer metastatic
     Dosage: 400 MG, DAILY (DOSAGE TEXT: SCHEMA 21 DAYS INTAKE, THAN 7 DAYS PAUSE)
     Route: 048
     Dates: start: 20210104
  4. KISQALI [Suspect]
     Active Substance: RIBOCICLIB
     Dosage: 400 MG, DAILY (DOSAGE TEXT: SCHEMA 21 DAYS INTAKE, THAN 7 DAYS PAUSE)
     Route: 048
     Dates: start: 20200812, end: 20201221
  5. KISQALI [Suspect]
     Active Substance: RIBOCICLIB
     Dosage: 400 MG, DAILY (DOSAGE TEXT: SCHEMA 21 DAYS INTAKE, THAN 7 DAYS PAUSE)
     Route: 048
     Dates: start: 20191014, end: 20200802
  6. KISQALI [Suspect]
     Active Substance: RIBOCICLIB
     Dosage: 600 MG, DAILY (DOSAGE TEXT: SCHEMA 21 DAYS INTAKE, THAN 7 DAYS PAUSE)
     Route: 048
     Dates: start: 20190902, end: 20190922
  7. KISQALI [Suspect]
     Active Substance: RIBOCICLIB
     Dosage: 200 MG, DAILY [200 MG, QD (SCHEMA 21 DAYS INTAKE, THAN 7 DAYS PAUSE)]
     Route: 048
     Dates: start: 20210713
  8. KISQALI [Suspect]
     Active Substance: RIBOCICLIB
     Dosage: 400 MG, DAILY [400 MG, QD (SCHEMA 21 DAYS INTAKE, THAN 7 DAYS PAUSE)]
     Route: 048
     Dates: start: 20210615, end: 20210627
  9. KISQALI [Suspect]
     Active Substance: RIBOCICLIB
     Dosage: 400 MG, DAILY (DOSAGE TEXT: SCHEMA 21 DAYS INTAKE, THAN 7 DAYS PAUSE)
     Route: 048
     Dates: start: 20210104, end: 20210426

REACTIONS (9)
  - Leukopenia [Recovered/Resolved]
  - Leukopenia [Not Recovered/Not Resolved]
  - Constipation [Recovered/Resolved]
  - Chest pain [Recovering/Resolving]
  - Pain [Unknown]
  - Skin erosion [Recovered/Resolved]
  - Exfoliative rash [Recovered/Resolved]
  - Fall [Recovered/Resolved]
  - Contusion [Recovered/Resolved]

NARRATIVE: CASE EVENT DATE: 20190903
